FAERS Safety Report 10862780 (Version 1)
Quarter: 2015Q1

REPORT INFORMATION
  Report Type: Spontaneous
  Country: US (occurrence: None)
  Receive Date: 20150219
  Receipt Date: 20150219
  Transmission Date: 20150721
  Serious: Yes (Hospitalization, Other)
  Sender: FDA-Public Use
  Company Number: US-ZYDUS-006727

PATIENT
  Age: 53 Year
  Sex: Female

DRUGS (3)
  1. RIBAVIRIN (RIBAVIRIN) [Suspect]
     Active Substance: RIBAVIRIN
  2. PEGINTERFERON ALFA-2A (PEGINTERFERON ALFA 2A) [Suspect]
     Active Substance: PEGINTERFERON ALFA-2A
  3. TELAPREVIR (TELAPREVIR) [Suspect]
     Active Substance: TELAPREVIR

REACTIONS (6)
  - Rash [None]
  - Thrombocytopenia [None]
  - Haematotoxicity [None]
  - Anaemia [None]
  - Acute kidney injury [None]
  - Dyspnoea [None]
